FAERS Safety Report 20592626 (Version 1)
Quarter: 2022Q1

REPORT INFORMATION
  Report Type: Spontaneous
  Country: CN (occurrence: CN)
  Receive Date: 20220314
  Receipt Date: 20220314
  Transmission Date: 20220423
  Serious: Yes (Other)
  Sender: FDA-Public Use
  Company Number: CN-BAXTER-2022BAX005319

PATIENT
  Age: 38 Year
  Sex: Female
  Weight: 51 kg

DRUGS (2)
  1. CYCLOPHOSPHAMIDE [Suspect]
     Active Substance: CYCLOPHOSPHAMIDE
     Indication: Acute lymphocytic leukaemia
     Dosage: CYCLOPHOSPHAMIDE FOR INJECTION (1.1 G) + SODIUM CHLORIDE INJECTION (250 ML)
     Route: 041
     Dates: start: 20220210, end: 20220210
  2. SODIUM CHLORIDE [Suspect]
     Active Substance: SODIUM CHLORIDE
     Indication: Medication dilution
     Dosage: CYCLOPHOSPHAMIDE FOR INJECTION (1.1 G) + SODIUM CHLORIDE INJECTION (250 ML)
     Route: 041
     Dates: start: 20220210, end: 20220210

REACTIONS (4)
  - Urinary tract pain [Recovering/Resolving]
  - Micturition urgency [Unknown]
  - Myelosuppression [Recovering/Resolving]
  - Candida infection [Unknown]

NARRATIVE: CASE EVENT DATE: 20220216
